FAERS Safety Report 4839755-0 (Version None)
Quarter: 2005Q4

REPORT INFORMATION
  Report Type: 
  Country: None (occurrence: None)
  Receive Date: 20051129
  Receipt Date: 20050811
  Transmission Date: 20060501
  Serious: No
  Sender: FDA-Public Use
  Company Number: US-GLAXOSMITHKLINE-A0569849A

PATIENT
  Age: 56 Year
  Sex: Female

DRUGS (5)
  1. WELLBUTRIN SR [Suspect]
     Indication: FIBROMYALGIA
     Route: 048
  2. WELLBUTRIN XL [Suspect]
     Route: 048
  3. WELLBUTRIN [Suspect]
     Indication: FIBROMYALGIA
     Route: 048
  4. WELLBUTRIN [Suspect]
     Dosage: 100MG FOUR TIMES PER DAY
     Route: 048
  5. DIAZEPAM [Concomitant]

REACTIONS (2)
  - DRUG INEFFECTIVE [None]
  - THERAPEUTIC RESPONSE UNEXPECTED [None]
